FAERS Safety Report 8820956 (Version 1)
Quarter: 2012Q4

REPORT INFORMATION
  Report Type: 
  Country: US (occurrence: US)
  Receive Date: 20121002
  Receipt Date: 20121002
  Transmission Date: 20130627
  Serious: No
  Sender: FDA-Public Use
  Company Number: US-009507513-1209USA010981

PATIENT
  Age: 91 Year
  Sex: Female

DRUGS (9)
  1. MIRALAX [Suspect]
     Indication: GASTROINTESTINAL DISORDER
     Dosage: UNK, qd
     Route: 048
  2. MIRALAX [Suspect]
     Dosage: UNK, bid
     Route: 048
     Dates: start: 20120826
  3. MIRALAX [Suspect]
     Dosage: 1 DF, UNK
     Dates: start: 20120904
  4. MIRALAX [Suspect]
     Dosage: 1 DF, UNK
     Dates: start: 20120905
  5. COLACE [Concomitant]
     Indication: GASTROINTESTINAL DISORDER
     Dosage: UNK, qd
     Dates: start: 20120826
  6. CALTRATE [Concomitant]
     Indication: PRODUCT USED FOR UNKNOWN INDICATION
     Dosage: UNK, qam
  7. VITAMIN D (UNSPECIFIED) [Concomitant]
     Indication: PRODUCT USED FOR UNKNOWN INDICATION
     Dosage: UNK, qam
  8. VERAPAMIL [Concomitant]
     Indication: PRODUCT USED FOR UNKNOWN INDICATION
     Dosage: UNK, qam
  9. ENALAPRIL MALEATE [Concomitant]
     Indication: PRODUCT USED FOR UNKNOWN INDICATION
     Dosage: UNK, bid

REACTIONS (2)
  - Pain [Unknown]
  - Inappropriate schedule of drug administration [Unknown]
